FAERS Safety Report 4359985-4 (Version None)
Quarter: 2004Q2

REPORT INFORMATION
  Report Type: 
  Country: None (occurrence: None)
  Receive Date: 20040518
  Receipt Date: 20040518
  Transmission Date: 20050107
  Serious: No
  Sender: FDA-Public Use
  Company Number: None

PATIENT
  Sex: Male
  Weight: 136 kg

DRUGS (10)
  1. GATIFLOXACIN [Suspect]
     Indication: INFECTION
     Dosage: 200MG QD ORAL
     Route: 048
     Dates: start: 20040511, end: 20040512
  2. GLYBURIDE [Concomitant]
  3. RESTORIL [Concomitant]
  4. SEROQUEL [Concomitant]
  5. ABILIFY [Concomitant]
  6. DEPAKOTE [Concomitant]
  7. LIPITOR [Concomitant]
  8. ATENOLOL [Concomitant]
  9. AVANDIA [Concomitant]
  10. EFFEXOR [Concomitant]

REACTIONS (1)
  - HYPOGLYCAEMIA [None]
